FAERS Safety Report 10246138 (Version 1)
Quarter: 2014Q2

REPORT INFORMATION
  Report Type: Spontaneous
  Country: US (occurrence: None)
  Receive Date: 20140617
  Receipt Date: 20140617
  Transmission Date: 20141212
  Serious: Yes (Other)
  Sender: FDA-Public Use
  Company Number: QSC-2014-0376

PATIENT
  Sex: Female

DRUGS (1)
  1. H.P. ACTHAR GEL [Suspect]
     Indication: SARCOIDOSIS

REACTIONS (1)
  - Atrial fibrillation [None]
